FAERS Safety Report 4799006-2 (Version None)
Quarter: 2005Q4

REPORT INFORMATION
  Report Type: 
  Country: None (occurrence: None)
  Receive Date: 20051014
  Receipt Date: 20050926
  Transmission Date: 20060501
  Serious: Yes (Life-Threatening, Hospitalization)
  Sender: FDA-Public Use
  Company Number: NL-BOEHRINGER INGELHEIM PHARMACEUTICALS, INC.-2005-BP-18335YA

PATIENT
  Sex: Male

DRUGS (2)
  1. OMNIC CAPSULES [Suspect]
     Indication: BENIGN PROSTATIC HYPERPLASIA
     Route: 048
     Dates: start: 20050516, end: 20050518
  2. TELMISARTIN [Concomitant]
     Route: 048
     Dates: start: 20020210, end: 20050518

REACTIONS (7)
  - FEELING ABNORMAL [None]
  - HYPERSENSITIVITY [None]
  - OEDEMA PERIPHERAL [None]
  - PAIN IN EXTREMITY [None]
  - PYREXIA [None]
  - RASH PAPULAR [None]
  - SHOCK [None]
